FAERS Safety Report 7998257-3 (Version None)
Quarter: 2011Q4

REPORT INFORMATION
  Report Type: 
  Country: None (occurrence: None)
  Receive Date: 20111221
  Receipt Date: 20110524
  Transmission Date: 20120403
  Serious: No
  Sender: FDA-Public Use
  Company Number: US-GLAXOSMITHKLINE-A0928951A

PATIENT
  Age: 76 Year
  Sex: Female

DRUGS (5)
  1. FOSAMAX [Concomitant]
  2. LOVAZA [Suspect]
     Indication: BLOOD TRIGLYCERIDES INCREASED
     Dosage: 2G TWICE PER DAY
     Route: 048
     Dates: start: 20090501
  3. BLOOD PRESSURE MEDICATION [Concomitant]
  4. SYNTHROID [Concomitant]
  5. ATENOLOL [Concomitant]

REACTIONS (7)
  - NAUSEA [None]
  - CONSTIPATION [None]
  - ABDOMINAL PAIN [None]
  - VULVOVAGINAL PRURITUS [None]
  - DRY MOUTH [None]
  - DIARRHOEA [None]
  - LENTIGO [None]
